FAERS Safety Report 7972972-X (Version None)
Quarter: 2011Q4

REPORT INFORMATION
  Report Type: 
  Country: None (occurrence: None)
  Receive Date: 20111213
  Receipt Date: 20111202
  Transmission Date: 20120403
  Serious: Yes (Hospitalization)
  Sender: FDA-Public Use
  Company Number: FR-BRISTOL-MYERS SQUIBB COMPANY-16272288

PATIENT
  Age: 63 Year
  Sex: Female

DRUGS (4)
  1. ORENCIA [Suspect]
     Indication: RHEUMATOID ARTHRITIS
     Dosage: 8 TH INF:13-JAN-2011
     Route: 042
     Dates: start: 20100702
  2. ARAVA [Concomitant]
  3. ATACAND [Concomitant]
  4. NEXIUM [Concomitant]

REACTIONS (2)
  - HYPERKERATOSIS [None]
  - DERMATITIS PSORIASIFORM [None]
